FAERS Safety Report 9291617 (Version 4)
Quarter: 2013Q4

REPORT INFORMATION
  Report Type: Spontaneous
  Country: DE (occurrence: DE)
  Receive Date: 20130515
  Receipt Date: 20131217
  Transmission Date: 20140711
  Serious: Yes (Life-Threatening, Hospitalization)
  Sender: FDA-Public Use
  Company Number: DE-GLAXOSMITHKLINE-D0079791A

PATIENT
  Sex: Female

DRUGS (3)
  1. REVOLADE [Suspect]
     Indication: IMMUNE THROMBOCYTOPENIC PURPURA
     Dosage: 50MG PER DAY
     Route: 048
     Dates: start: 20130420, end: 20130515
  2. CONTRACEPTIVE [Concomitant]
     Indication: CONTRACEPTION
     Route: 065
  3. L-THYROXIN [Concomitant]
     Indication: AUTOIMMUNE THYROIDITIS
     Route: 065

REACTIONS (3)
  - Pulmonary embolism [Recovering/Resolving]
  - Pneumonia [Recovering/Resolving]
  - Respiratory tract infection [Not Recovered/Not Resolved]
